FAERS Safety Report 8250276-8 (Version None)
Quarter: 2012Q2

REPORT INFORMATION
  Report Type: 
  Country: None (occurrence: None)
  Receive Date: 20120402
  Receipt Date: 20120326
  Transmission Date: 20120825
  Serious: Yes (Hospitalization)
  Sender: FDA-Public Use
  Company Number: AU-B.I. PHARMACEUTICALS,INC./RIDGEFIELD-2012-AU-00540AU

PATIENT
  Sex: Male
  Weight: 80 kg

DRUGS (4)
  1. PRADAXA [Suspect]
     Indication: ATRIAL FIBRILLATION
     Dosage: 300 MG
     Dates: start: 20110816, end: 20111012
  2. CELEBREX [Concomitant]
     Dates: start: 20110401, end: 20111012
  3. BETA BLOCKER [Concomitant]
     Indication: TACHYCARDIA
  4. PREDNISONE TAB [Concomitant]
     Indication: RHEUMATOID ARTHRITIS
     Dates: start: 20100601

REACTIONS (3)
  - RENAL FAILURE ACUTE [None]
  - DELIRIUM [None]
  - NAUSEA [None]
